FAERS Safety Report 25992805 (Version 2)
Quarter: 2025Q4

REPORT INFORMATION
  Report Type: Spontaneous
  Country: JP (occurrence: JP)
  Receive Date: 20251103
  Receipt Date: 20251130
  Transmission Date: 20260117
  Serious: Yes (Death, Other)
  Sender: TAKEDA
  Company Number: JP-TAKEDA-2025TJP011085

PATIENT
  Age: 6 Decade
  Sex: Male

DRUGS (1)
  1. FRUZAQLA [Suspect]
     Active Substance: FRUQUINTINIB
     Indication: Colorectal cancer
     Dosage: 3 MILLIGRAM

REACTIONS (1)
  - Colorectal cancer [Fatal]

NARRATIVE: CASE EVENT DATE: 20250924
